FAERS Safety Report 7849472 (Version 2)
Quarter: 2012Q4

REPORT INFORMATION
  Report Type: Spontaneous
  Country: CN (occurrence: None)
  Receive Date: 20110204
  Receipt Date: 20120814
  Transmission Date: 20130627
  Serious: Yes (Other)
  Sender: FDA-Public Use
  Company Number: 2011000366

PATIENT
  Age: 92 Year
  Sex: Male

DRUGS (7)
  1. TARCEVA [Suspect]
     Indication: LUNG ADENOCARCINOMA
     Dosage: (75 MG), UID/QD, ORAL
     Route: 048
     Dates: start: 20070816
  2. TARCEVA [Suspect]
     Indication: LUNG ADENOCARCINOMA
     Dosage: 112.5 mg, even numbered days, Oral
     Route: 048
     Dates: start: 20070905, end: 20071113
  3. TARCEVA [Suspect]
     Indication: LUNG ADENOCARCINOMA
     Dosage: 50 mg, even numbered days, Oral
     Route: 048
     Dates: start: 20071114, end: 20071216
  4. TARCEVA [Suspect]
     Indication: LUNG ADENOCARCINOMA
     Dosage: 75 mg, odd numbered days, Oral
     Route: 048
     Dates: start: 20071114, end: 20071216
  5. TARCEVA [Suspect]
     Indication: LUNG ADENOCARCINOMA
     Dosage: 75 mg, UID/QD, Oral
     Route: 048
     Dates: start: 20071217, end: 20080509
  6. TARCEVA [Suspect]
     Indication: LUNG ADENOCARCINOMA
     Dosage: restarted after hematuria and GI tract hemorrhage improved, Oral
     Dates: end: 20080527
  7. TARCEVA [Suspect]
     Indication: LUNG ADENOCARCINOMA
     Dosage: noncontiguous use 50 mg or 75 mg daily, Oral
     Route: 048
     Dates: start: 200809

REACTIONS (7)
  - Intestinal obstruction [None]
  - Rash [None]
  - Haematuria [None]
  - Gastrointestinal haemorrhage [None]
  - Metastases to lymph nodes [None]
  - Incorrect dose administered [None]
  - Urethral haemorrhage [None]
